FAERS Safety Report 11687761 (Version 2)
Quarter: 2015Q4

REPORT INFORMATION
  Report Type: Spontaneous
  Country: CN (occurrence: CN)
  Receive Date: 20151030
  Receipt Date: 20151104
  Transmission Date: 20160304
  Serious: Yes (Other)
  Sender: FDA-Public Use
  Company Number: CN-JNJFOC-20151023970

PATIENT

DRUGS (1)
  1. INFLIXIMAB, RECOMBINANT [Suspect]
     Active Substance: INFLIXIMAB
     Indication: CROHN^S DISEASE
     Dosage: WEEK 0, 2 AND 6 RESPECTIVELY AND THEN ONCE PER 8 WEEKS
     Route: 042

REACTIONS (1)
  - Tuberculosis [Recovering/Resolving]
